FAERS Safety Report 25760755 (Version 1)
Quarter: 2025Q3

REPORT INFORMATION
  Report Type: Spontaneous
  Country: CN (occurrence: CN)
  Receive Date: 20250904
  Receipt Date: 20250904
  Transmission Date: 20251021
  Serious: Yes (Hospitalization, Other)
  Sender: PFIZER
  Company Number: CN-PFIZER INC-PV202500105193

PATIENT
  Age: 72 Year
  Sex: Female
  Weight: 55 kg

DRUGS (4)
  1. LINEZOLID [Suspect]
     Active Substance: LINEZOLID
     Indication: Bone tuberculosis
     Dosage: 0.6 G, 1X/DAY
     Route: 048
     Dates: start: 20250512, end: 20250813
  2. ISONIAZID [Concomitant]
     Active Substance: ISONIAZID
     Indication: Bone tuberculosis
     Dosage: 0.3 G, 1X/DAY
     Route: 048
     Dates: start: 20250512, end: 20250823
  3. RIFAPENTINE [Concomitant]
     Active Substance: RIFAPENTINE
     Indication: Bone tuberculosis
     Dates: start: 202505
  4. ETHAMBUTOL [Concomitant]
     Active Substance: ETHAMBUTOL HYDROCHLORIDE
     Indication: Bone tuberculosis
     Dates: start: 202505

REACTIONS (4)
  - Pain in extremity [Recovering/Resolving]
  - Paralysis [Recovering/Resolving]
  - Off label use [Unknown]
  - Off label use [Unknown]

NARRATIVE: CASE EVENT DATE: 20250512
